FAERS Safety Report 6696304-2 (Version None)
Quarter: 2010Q2

REPORT INFORMATION
  Report Type: 
  Country: None (occurrence: None)
  Receive Date: 20100426
  Receipt Date: 20100420
  Transmission Date: 20101027
  Serious: Yes (Death, Disabling, Other)
  Sender: FDA-Public Use
  Company Number: US-TEVA-231837USA

PATIENT
  Sex: Female

DRUGS (3)
  1. MEDROXYPROGESTERONE [Suspect]
     Dates: end: 20000101
  2. MEDROXYPROGESTERONE ACETATE [Suspect]
  3. ESTROGENS CONJUGATED [Suspect]

REACTIONS (1)
  - BREAST CANCER [None]
